FAERS Safety Report 10255792 (Version 2)
Quarter: 2014Q2

REPORT INFORMATION
  Report Type: Report from Study
  Country: KR (occurrence: KR)
  Receive Date: 20140624
  Receipt Date: 20140624
  Transmission Date: 20141212
  Serious: Yes (Hospitalization)
  Sender: FDA-Public Use
  Company Number: KR-ABBVIE-14K-090-1241284-00

PATIENT
  Age: 1 Year
  Sex: Male

DRUGS (8)
  1. SYNAGIS [Suspect]
     Indication: BRONCHOPULMONARY DYSPLASIA
     Route: 030
     Dates: start: 20130912, end: 20130912
  2. SYNAGIS [Suspect]
     Route: 030
     Dates: start: 20131015, end: 20131015
  3. SYNAGIS [Suspect]
     Route: 030
     Dates: start: 20131119, end: 20131119
  4. SYNAGIS [Suspect]
     Route: 030
     Dates: start: 20140107, end: 20140107
  5. SYNAGIS [Suspect]
     Route: 030
     Dates: start: 20140211, end: 20140211
  6. TAMIFLU [Concomitant]
     Indication: INFLUENZA
     Route: 048
     Dates: start: 20140225, end: 20140301
  7. SAMA ATOCK DRY SYRUP [Concomitant]
     Indication: INFLUENZA
     Route: 048
     Dates: start: 20140225, end: 20140301
  8. SYNTHYROID [Concomitant]
     Indication: HYPOTHYROIDISM
     Route: 048
     Dates: start: 20130218, end: 20140318

REACTIONS (2)
  - Bronchiolitis [Recovered/Resolved]
  - Influenza [Recovered/Resolved]
